FAERS Safety Report 21754817 (Version 2)
Quarter: 2023Q1

REPORT INFORMATION
  Report Type: Spontaneous
  Country: US (occurrence: US)
  Receive Date: 20221220
  Receipt Date: 20230306
  Transmission Date: 20230418
  Serious: No
  Sender: FDA-Public Use
  Company Number: US-PFIZER INC-PV202200002636

PATIENT
  Age: 26 Year
  Sex: Female

DRUGS (1)
  1. XELJANZ [Suspect]
     Active Substance: TOFACITINIB CITRATE
     Indication: Colitis ulcerative
     Dosage: 10 MG, 2X/DAY
     Route: 048
     Dates: start: 202201

REACTIONS (4)
  - Drug effect less than expected [Unknown]
  - Off label use [Unknown]
  - Product dose omission in error [Unknown]
  - Product dose omission issue [Unknown]
